FAERS Safety Report 20825566 (Version 1)
Quarter: 2022Q2

REPORT INFORMATION
  Report Type: Spontaneous
  Country: US (occurrence: US)
  Receive Date: 20220513
  Receipt Date: 20220513
  Transmission Date: 20220721
  Serious: Yes (Hospitalization, Other)
  Sender: FDA-Public Use
  Company Number: US-BAYER-2022A066293

PATIENT
  Age: 36 Year
  Sex: Female

DRUGS (2)
  1. ASPIRIN [Suspect]
     Active Substance: ASPIRIN
     Dosage: UNK
  2. WARFARIN [Suspect]
     Active Substance: WARFARIN

REACTIONS (3)
  - Haemorrhagic ascites [Recovered/Resolved]
  - Labelled drug-drug interaction medication error [None]
  - Haemoglobin decreased [Recovered/Resolved]
